FAERS Safety Report 21220157 (Version 1)
Quarter: 2022Q3

REPORT INFORMATION
  Report Type: Spontaneous
  Country: FR (occurrence: FR)
  Receive Date: 20220817
  Receipt Date: 20220817
  Transmission Date: 20221026
  Serious: Yes (Other)
  Sender: FDA-Public Use
  Company Number: FR-AFSSAPS-LY20223768

PATIENT
  Age: 61 Year
  Sex: Male
  Weight: 71 kg

DRUGS (3)
  1. ATORVASTATIN [Suspect]
     Active Substance: ATORVASTATIN
     Indication: Product used for unknown indication
     Dosage: ATORVASTATINE 80 MG : 27 OCT ? 13 DECATORVASTATINE 40 MG : 7 JAN ? (18 JANVIER) PANTOPRAZOLE 20 MG :
     Route: 048
     Dates: start: 20211027
  2. PANTOPRAZOLE [Suspect]
     Active Substance: PANTOPRAZOLE
     Indication: Product used for unknown indication
     Dosage: PANTOPRAZOLE 40 MG : 2 - 22 NOV + 5 - 12 JANVIERPANTOPRAZOLE 20 MG : 12 ? 16 JANVIER
     Route: 048
     Dates: start: 20211102
  3. LANSOPRAZOLE [Suspect]
     Active Substance: LANSOPRAZOLE
     Indication: Product used for unknown indication
     Dosage: LANSOPRAZOLE 15 MG (4/JOUR) : 27 OCT ? 2 NOVLANSOPRAZOLE 15 MG (1/JOUR) : 22 NOV ? 16 DEC
     Route: 048
     Dates: start: 20211027, end: 20211216

REACTIONS (1)
  - Hepatic cytolysis [Unknown]

NARRATIVE: CASE EVENT DATE: 20211101
